FAERS Safety Report 9547367 (Version 1)
Quarter: 2013Q3

REPORT INFORMATION
  Report Type: Report from Study
  Country: CA (occurrence: CA)
  Receive Date: 20130924
  Receipt Date: 20130924
  Transmission Date: 20140515
  Serious: Yes (Hospitalization)
  Sender: FDA-Public Use
  Company Number: CA-JNJFOC-20130910563

PATIENT
  Age: 44 Year
  Sex: Female
  Weight: 69.8 kg

DRUGS (8)
  1. REMICADE [Suspect]
     Indication: COLITIS ULCERATIVE
     Route: 042
     Dates: start: 20130611
  2. VENLAFAXINE [Concomitant]
     Route: 065
  3. NORTRIPTYLINE [Concomitant]
     Route: 065
  4. GABAPENTIN [Concomitant]
     Route: 065
  5. ATORVASTATIN [Concomitant]
     Route: 065
  6. ZOPICLONE [Concomitant]
     Route: 065
  7. PENTASA [Concomitant]
     Route: 065
  8. TECTA [Concomitant]
     Route: 065

REACTIONS (1)
  - Colonoscopy [Recovered/Resolved]
